FAERS Safety Report 4637031-2 (Version None)
Quarter: 2005Q2

REPORT INFORMATION
  Report Type: 
  Country: None (occurrence: None)
  Receive Date: 20050328
  Receipt Date: 20041202
  Transmission Date: 20051028
  Serious: No
  Sender: FDA-Public Use
  Company Number: USA041285149

PATIENT
  Age: 63 Year
  Sex: Female

DRUGS (4)
  1. STRATTERA [Suspect]
     Indication: ATTENTION DEFICIT/HYPERACTIVITY DISORDER
     Dosage: 80 MG DAY
     Dates: start: 20041001
  2. PROZAC [Suspect]
     Indication: DEPRESSION
     Dosage: 20 MG DAY
  3. OGEN [Concomitant]
  4. NORVASC [Concomitant]

REACTIONS (5)
  - CHILLS [None]
  - DRUG EFFECT DECREASED [None]
  - ERYTHEMA [None]
  - FEELING HOT [None]
  - FLUSHING [None]
